FAERS Safety Report 16883881 (Version 4)
Quarter: 2020Q1

REPORT INFORMATION
  Report Type: Spontaneous
  Country: US (occurrence: US)
  Receive Date: 20191004
  Receipt Date: 20200204
  Transmission Date: 20200409
  Serious: Yes (Death, Hospitalization, Other)
  Sender: FDA-Public Use
  Company Number: US-GW PHARMA-201909USGW3532

PATIENT

DRUGS (1)
  1. EPIDIOLEX [Suspect]
     Active Substance: CANNABIDIOL
     Indication: TUBEROUS SCLEROSIS COMPLEX
     Dosage: UNK
     Route: 048

REACTIONS (12)
  - Sepsis [Fatal]
  - Intestinal ischaemia [Fatal]
  - Dehydration [Unknown]
  - Acute respiratory failure [Unknown]
  - Acute kidney injury [Unknown]
  - Haematochezia [Unknown]
  - Nausea [Recovered/Resolved]
  - Vomiting [Unknown]
  - Metabolic encephalopathy [Unknown]
  - Product use in unapproved indication [Unknown]
  - Pneumonia aspiration [Fatal]
  - Septic shock [Unknown]

NARRATIVE: CASE EVENT DATE: 201908
